FAERS Safety Report 24141629 (Version 1)
Quarter: 2024Q3

REPORT INFORMATION
  Report Type: Spontaneous
  Country: US (occurrence: None)
  Receive Date: 20240726
  Receipt Date: 20240726
  Transmission Date: 20241017
  Serious: Yes (Life-Threatening, Hospitalization, Disabling)
  Sender: Public
  Company Number: None

PATIENT
  Age: 26 Year
  Sex: Male
  Weight: 77.4 kg

DRUGS (1)
  1. PROPECIA [Suspect]
     Active Substance: FINASTERIDE
     Indication: Androgenetic alopecia
     Dosage: 1 TABLET DAILY ORAL
     Route: 048
     Dates: start: 20231010, end: 20240202

REACTIONS (6)
  - Loss of libido [None]
  - Erectile dysfunction [None]
  - Brain fog [None]
  - Insomnia [None]
  - Hypoaesthesia [None]
  - Lethargy [None]

NARRATIVE: CASE EVENT DATE: 20240204
